FAERS Safety Report 8086953-1 (Version None)
Quarter: 2012Q1

REPORT INFORMATION
  Report Type: 
  Country: None (occurrence: None)
  Receive Date: 20120128
  Receipt Date: 20110520
  Transmission Date: 20120608
  Serious: No
  Sender: FDA-Public Use
  Company Number: US-ABBOTT-11P-163-0727299-00

PATIENT
  Sex: Female

DRUGS (3)
  1. LORTAB [Concomitant]
     Indication: ARTHRALGIA
     Dosage: 7.5/? AS NEEDED
     Route: 048
  2. HUMIRA [Suspect]
     Indication: RHEUMATOID ARTHRITIS
     Route: 058
     Dates: start: 20110308
  3. LEFLUNOMIDE [Concomitant]
     Indication: RHEUMATOID ARTHRITIS
     Route: 048

REACTIONS (4)
  - INJECTION SITE RASH [None]
  - INJECTION SITE PRURITUS [None]
  - GAIT DISTURBANCE [None]
  - ARTHRALGIA [None]
